FAERS Safety Report 17264110 (Version 1)
Quarter: 2019Q4

REPORT INFORMATION
  Report Type: Spontaneous
  Country: US (occurrence: US)
  Receive Date: 20191219
  Receipt Date: 20191219
  Transmission Date: 20200122
  Serious: No
  Sender: FDA-Public Use
  Company Number: None

PATIENT
  Age: 64 Year
  Sex: Male

DRUGS (1)
  1. SOFOSBUVIR / VELSPATASVIR 400-100MG [Suspect]
     Active Substance: SOFOSBUVIR\VELPATASVIR

REACTIONS (2)
  - Incorrect dose administered [None]
  - Inappropriate schedule of product administration [None]

NARRATIVE: CASE EVENT DATE: 20191010
